FAERS Safety Report 15481994 (Version 1)
Quarter: 2018Q4

REPORT INFORMATION
  Report Type: Spontaneous
  Country: US (occurrence: US)
  Receive Date: 20181003
  Receipt Date: 20181003
  Transmission Date: 20190205
  Serious: Yes (Hospitalization)
  Sender: FDA-Public Use
  Company Number: None

PATIENT
  Age: 20 Year
  Sex: Female
  Weight: 68.85 kg

DRUGS (10)
  1. MELATONIN [Concomitant]
     Active Substance: MELATONIN
     Dates: start: 20180315
  2. OLANZAPINE. [Concomitant]
     Active Substance: OLANZAPINE
     Dates: start: 20180731
  3. SULFAMETHOXAZOLE/TRIMETHOPRIM [Suspect]
     Active Substance: SULFAMETHOXAZOLE\TRIMETHOPRIM
     Indication: CELLULITIS
     Route: 048
  4. LAMOTRIGINE. [Concomitant]
     Active Substance: LAMOTRIGINE
     Dates: start: 20171129
  5. CEFTRIAXONE. [Suspect]
     Active Substance: CEFTRIAXONE
     Dates: start: 20171221
  6. NORTREL [Concomitant]
     Active Substance: ETHINYL ESTRADIOL\NORETHINDRONE
     Dates: start: 20180315
  7. ACETAMINOPHEN. [Concomitant]
     Active Substance: ACETAMINOPHEN
  8. PEG [Concomitant]
     Active Substance: POLYETHYLENE GLYCOLS
     Dates: start: 20180521
  9. DIVALPROEX [Suspect]
     Active Substance: DIVALPROEX SODIUM
     Dates: start: 20171213
  10. PROPRANOLOL [Concomitant]
     Active Substance: PROPRANOLOL HYDROCHLORIDE
     Dates: start: 20171205

REACTIONS (9)
  - Decreased appetite [None]
  - Tremor [None]
  - Feeling cold [None]
  - Somnolence [None]
  - Pallor [None]
  - Dyspnoea [None]
  - Pyrexia [None]
  - Oxygen saturation decreased [None]
  - Thrombocytopenia [None]

NARRATIVE: CASE EVENT DATE: 20180807
